FAERS Safety Report 16320054 (Version 1)
Quarter: 2019Q2

REPORT INFORMATION
  Report Type: Spontaneous
  Country: US (occurrence: US)
  Receive Date: 20190516
  Receipt Date: 20190516
  Transmission Date: 20190711
  Serious: No
  Sender: FDA-Public Use
  Company Number: US-HIKMA PHARMACEUTICALS USA INC.-US-H14001-19-01500

PATIENT

DRUGS (3)
  1. METHOTREXATE. [Suspect]
     Active Substance: METHOTREXATE
     Indication: POLYARTHRITIS
     Route: 065
  2. PREDNISONE. [Suspect]
     Active Substance: PREDNISONE
     Indication: POLYARTHRITIS
     Route: 065
  3. CORTISONE [Concomitant]
     Active Substance: CORTISONE\HYDROCORTISONE
     Indication: POLYARTHRITIS
     Route: 065

REACTIONS (6)
  - Vasospasm [Unknown]
  - Cough [Unknown]
  - Rash [Unknown]
  - Sinusitis [Unknown]
  - Drug ineffective [Recovered/Resolved]
  - Erythema [Unknown]
